FAERS Safety Report 6358486-1 (Version None)
Quarter: 2009Q3

REPORT INFORMATION
  Report Type: 
  Country: None (occurrence: None)
  Receive Date: 20090916
  Receipt Date: 20080910
  Transmission Date: 20100115
  Serious: No
  Sender: FDA-Public Use
  Company Number: US-AMGEN-KDL301262

PATIENT
  Sex: Female
  Weight: 63.3 kg

DRUGS (6)
  1. NEUPOGEN [Suspect]
     Indication: CHEMOTHERAPY
     Route: 058
     Dates: start: 20080806
  2. ADRIAMYCIN PFS [Concomitant]
  3. CYCLOPHOSPHAMIDE [Concomitant]
  4. ECHINACEA EXTRACT [Concomitant]
  5. UNSPECIFIED HERBAL PRODUCT [Concomitant]
  6. TAXOL [Concomitant]

REACTIONS (1)
  - NEUTROPHIL COUNT DECREASED [None]
